FAERS Safety Report 25756481 (Version 2)
Quarter: 2025Q4

REPORT INFORMATION
  Report Type: Spontaneous
  Country: US (occurrence: US)
  Receive Date: 20250903
  Receipt Date: 20251016
  Transmission Date: 20260118
  Serious: No
  Sender: SANOFI AVENTIS
  Company Number: US-SA-2025SA190996

PATIENT
  Age: 53 Year
  Sex: Male

DRUGS (2)
  1. DUPIXENT [Suspect]
     Active Substance: DUPILUMAB
     Indication: Asthma
     Dosage: 300 MG, QOW
     Route: 058
  2. DUPIXENT [Suspect]
     Active Substance: DUPILUMAB
     Indication: Obstructive sleep apnoea syndrome

REACTIONS (4)
  - Dyspnoea [Not Recovered/Not Resolved]
  - Ocular hyperaemia [Unknown]
  - Dry eye [Unknown]
  - Product use in unapproved indication [Unknown]
